FAERS Safety Report 9315086 (Version 5)
Quarter: 2014Q3

REPORT INFORMATION
  Report Type: Report from Study
  Country: US (occurrence: US)
  Receive Date: 20130529
  Receipt Date: 20140705
  Transmission Date: 20150326
  Serious: Yes (Hospitalization, Other)
  Sender: FDA-Public Use
  Company Number: US-ALEXION-A201301207

PATIENT

DRUGS (2)
  1. SOLIRIS [Suspect]
     Active Substance: ECULIZUMAB
     Indication: HAEMOLYTIC URAEMIC SYNDROME
     Dosage: UNK
     Route: 042
     Dates: start: 20130426
  2. SOLIRIS [Suspect]
     Active Substance: ECULIZUMAB
     Dosage: UNK
     Route: 042
     Dates: start: 20130515

REACTIONS (8)
  - Drug ineffective [Unknown]
  - Lymphoma [Unknown]
  - Activities of daily living impaired [Unknown]
  - Platelet count decreased [Recovered/Resolved]
  - Quality of life decreased [Unknown]
  - Pain [Unknown]
  - Diarrhoea [Unknown]
  - Catheter placement [Unknown]

NARRATIVE: CASE EVENT DATE: 20130516
